FAERS Safety Report 13462209 (Version 1)
Quarter: 2017Q2

REPORT INFORMATION
  Report Type: Spontaneous
  Country: NO (occurrence: NO)
  Receive Date: 20170420
  Receipt Date: 20170420
  Transmission Date: 20170830
  Serious: Yes (Life-Threatening)
  Sender: FDA-Public Use
  Company Number: NO-009507513-1704NOR005057

PATIENT
  Age: 47 Year
  Sex: Male

DRUGS (7)
  1. VOLTAREN [Concomitant]
     Active Substance: DICLOFENAC SODIUM
     Dosage: 50 MG, TID
     Route: 048
  2. PARACET [Concomitant]
     Active Substance: ACETAMINOPHEN
     Dosage: 1 G, QID
     Route: 048
  3. SOBRIL [Concomitant]
     Active Substance: OXAZEPAM
     Indication: ANXIETY
     Dosage: 25 MG, BID
     Route: 048
  4. ZOPICLONE ACTAVIS [Concomitant]
     Active Substance: ZOPICLONE
     Dosage: 15 MG, QD
     Route: 048
  5. LAXOBERAL [Concomitant]
     Active Substance: SODIUM PICOSULFATE
     Indication: CONSTIPATION
     Dosage: 10 GTT, QD
     Route: 048
  6. HEMINEVRIN [Concomitant]
     Active Substance: CLOMETHIAZOLE
     Dosage: 1200 MG, QD
     Route: 048
  7. ZEPATIER [Suspect]
     Active Substance: ELBASVIR\GRAZOPREVIR
     Indication: CHRONIC HEPATITIS C
     Dosage: 50 MG/100 MG TABLET. PLANNED 12 WEEKS TREATMENT COURSE
     Route: 048
     Dates: start: 20170306

REACTIONS (1)
  - Cutaneous vasculitis [Recovering/Resolving]

NARRATIVE: CASE EVENT DATE: 201703
